FAERS Safety Report 7337109-9 (Version None)
Quarter: 2011Q1

REPORT INFORMATION
  Report Type: 
  Country: None (occurrence: None)
  Receive Date: 20110308
  Receipt Date: 20110228
  Transmission Date: 20110831
  Serious: Yes (Hospitalization, Other)
  Sender: FDA-Public Use
  Company Number: US-BAYER-2011-018885

PATIENT
  Sex: Female

DRUGS (2)
  1. MIRENA [Suspect]
     Dosage: UNK
  2. MIRENA [Suspect]
     Indication: CONTRACEPTION
     Dosage: UNK
     Dates: start: 20030601, end: 20040101

REACTIONS (7)
  - OVARIAN CYST RUPTURED [None]
  - GRAND MAL CONVULSION [None]
  - CONVULSION [None]
  - HEADACHE [None]
  - METRORRHAGIA [None]
  - AMENORRHOEA [None]
  - FEELING ABNORMAL [None]
